FAERS Safety Report 4586932-2 (Version None)
Quarter: 2005Q1

REPORT INFORMATION
  Report Type: 
  Country: None (occurrence: None)
  Receive Date: 20050218
  Receipt Date: 20050207
  Transmission Date: 20050727
  Serious: Yes (Death)
  Sender: FDA-Public Use
  Company Number: US-JNJFOC-20040503111

PATIENT
  Sex: Male

DRUGS (6)
  1. REMINYL [Suspect]
     Indication: DRUG USE FOR UNKNOWN INDICATION
     Route: 049
  2. ATICAND [Concomitant]
     Route: 049
  3. PREDNISONE [Concomitant]
     Route: 049
  4. PRAVACHOL [Concomitant]
     Route: 049
  5. LABETALOL HCL [Concomitant]
     Route: 049
  6. ALBUTEROL [Concomitant]
     Route: 055

REACTIONS (6)
  - CARDIAC FAILURE CONGESTIVE [None]
  - CHRONIC OBSTRUCTIVE AIRWAYS DISEASE EXACERBATED [None]
  - PAIN [None]
  - RENAL CELL CARCINOMA STAGE UNSPECIFIED [None]
  - URINARY RETENTION [None]
  - URINARY TRACT OBSTRUCTION [None]
